FAERS Safety Report 23054829 (Version 1)
Quarter: 2023Q4

REPORT INFORMATION
  Report Type: Spontaneous
  Country: GB (occurrence: GB)
  Receive Date: 20231011
  Receipt Date: 20231011
  Transmission Date: 20240109
  Serious: Yes (Disabling, Other)
  Sender: FDA-Public Use
  Company Number: GB-MHRA-MED-202310010746478270-HZMLP

PATIENT
  Age: 42 Year
  Sex: Female

DRUGS (1)
  1. MIRENA [Suspect]
     Active Substance: LEVONORGESTREL
     Indication: Uterine leiomyoma
     Dosage: 20?G/DAY
     Route: 015
     Dates: start: 202210, end: 202308

REACTIONS (7)
  - Hand dermatitis [Recovering/Resolving]
  - Dyshidrotic eczema [Recovering/Resolving]
  - Weight bearing difficulty [None]
  - Insomnia [None]
  - Abdominal pain lower [None]
  - Autoimmune dermatitis [Recovering/Resolving]
  - Eczema [Recovering/Resolving]

NARRATIVE: CASE EVENT DATE: 20221001
